FAERS Safety Report 6268810-6 (Version None)
Quarter: 2009Q3

REPORT INFORMATION
  Report Type: 
  Country: None (occurrence: None)
  Receive Date: 20090715
  Receipt Date: 20090701
  Transmission Date: 20100115
  Serious: Yes (Other)
  Sender: FDA-Public Use
  Company Number: CL-GENENTECH-286583

PATIENT
  Sex: Female

DRUGS (3)
  1. TRASTUZUMAB [Suspect]
     Indication: BREAST CANCER METASTATIC
     Dosage: 4 MG/KG, UNK
     Route: 042
  2. LAPATINIB [Suspect]
     Indication: BREAST CANCER METASTATIC
     Dosage: 1500 MG, UNK
     Route: 048
     Dates: start: 20090121
  3. TAMOXIFEN CITRATE [Suspect]
     Indication: ANTIOESTROGEN THERAPY
     Dosage: 20 MG, UNK
     Route: 048
     Dates: start: 20081209

REACTIONS (1)
  - ALANINE AMINOTRANSFERASE INCREASED [None]
